FAERS Safety Report 19143122 (Version 1)
Quarter: 2021Q2

REPORT INFORMATION
  Report Type: Spontaneous
  Country: US (occurrence: US)
  Receive Date: 20210415
  Receipt Date: 20210415
  Transmission Date: 20210717
  Serious: No
  Sender: FDA-Public Use
  Company Number: US-ORGANON-O2103USA002879

PATIENT
  Age: 17 Year
  Sex: Female

DRUGS (3)
  1. ISOTRETINOIN. [Concomitant]
     Active Substance: ISOTRETINOIN
     Indication: PITYRIASIS RUBRA PILARIS
     Dosage: 80 MILLIGRAMS, DAILY
     Route: 048
  2. BETAMETHASONE DIPROPIONATE AUGMENTED [Suspect]
     Active Substance: BETAMETHASONE DIPROPIONATE
     Indication: PITYRIASIS RUBRA PILARIS
     Dosage: UNK
     Route: 061
  3. METHOTREXATE. [Concomitant]
     Active Substance: METHOTREXATE
     Indication: PITYRIASIS RUBRA PILARIS
     Dosage: 12.5 MG ONCE WEEKLY

REACTIONS (1)
  - Product use in unapproved indication [Unknown]
